FAERS Safety Report 21513235 (Version 1)
Quarter: 2022Q4

REPORT INFORMATION
  Report Type: Spontaneous
  Country: CA (occurrence: CA)
  Receive Date: 20221027
  Receipt Date: 20221027
  Transmission Date: 20230112
  Serious: Yes (Other)
  Sender: FDA-Public Use
  Company Number: CA-TEVA-2022-CA-2819237

PATIENT
  Age: 50 Year
  Sex: Female
  Weight: 47 kg

DRUGS (2)
  1. QUETIAPINE [Suspect]
     Active Substance: QUETIAPINE
     Indication: Sleep disorder therapy
     Dosage: 25 MILLIGRAM DAILY; 2.5 YEARS
     Route: 048
  2. QUETIAPINE [Suspect]
     Active Substance: QUETIAPINE
     Indication: Antidepressant therapy

REACTIONS (6)
  - Gastric pH decreased [Unknown]
  - Homicidal ideation [Unknown]
  - Kidney infection [Unknown]
  - Mental disorder [Unknown]
  - Renal pain [Unknown]
  - Suicidal ideation [Unknown]
